FAERS Safety Report 11891145 (Version 1)
Quarter: 2016Q1

REPORT INFORMATION
  Report Type: Spontaneous
  Country: US (occurrence: US)
  Receive Date: 20160106
  Receipt Date: 20160106
  Transmission Date: 20160526
  Serious: Yes (Other)
  Sender: FDA-Public Use
  Company Number: US-BRISTOL-MYERS SQUIBB COMPANY-BMS-2015-091485

PATIENT
  Sex: Female

DRUGS (5)
  1. HYDREA [Suspect]
     Active Substance: HYDROXYUREA
     Indication: MENINGIOMA
     Route: 065
  2. INTERFERON ALFA NOS [Suspect]
     Active Substance: INTERFERON ALFA-2A OR INTERFERON ALFA-2B
     Indication: MENINGIOMA
     Route: 065
  3. SOMATOSTATIN [Suspect]
     Active Substance: SOMATOSTATIN
     Indication: MENINGIOMA
     Route: 065
  4. SUTENT [Suspect]
     Active Substance: SUNITINIB MALATE
     Indication: MENINGIOMA
     Route: 065
  5. AVASTIN [Suspect]
     Active Substance: BEVACIZUMAB
     Indication: MENINGIOMA
     Route: 065

REACTIONS (1)
  - Malignant neoplasm progression [Unknown]
